FAERS Safety Report 7973620-5 (Version None)
Quarter: 2011Q4

REPORT INFORMATION
  Report Type: 
  Country: None (occurrence: None)
  Receive Date: 20111213
  Receipt Date: 20111201
  Transmission Date: 20120403
  Serious: Yes (Other)
  Sender: FDA-Public Use
  Company Number: GB-UCBSA-046717

PATIENT
  Age: 29 Year
  Sex: Male
  Weight: 82 kg

DRUGS (2)
  1. ACETAMINOPHEN AND CODEINE PHOSPHATE [Suspect]
     Dosage: 60 X 8/500 MG TABLETS
  2. CITALOPRAM [Concomitant]
     Indication: DEPRESSION

REACTIONS (1)
  - OVERDOSE [None]
